FAERS Safety Report 13799664 (Version 1)
Quarter: 2017Q3

REPORT INFORMATION
  Report Type: Spontaneous
  Country: US (occurrence: US)
  Receive Date: 20170727
  Receipt Date: 20170727
  Transmission Date: 20171127
  Serious: Yes (Hospitalization)
  Sender: FDA-Public Use
  Company Number: None

PATIENT
  Age: 72 Year
  Sex: Female
  Weight: 40.4 kg

DRUGS (1)
  1. OPDIVO [Suspect]
     Active Substance: NIVOLUMAB
     Indication: LUNG CARCINOMA CELL TYPE UNSPECIFIED STAGE IV
     Dosage: ?          OTHER FREQUENCY:EVERY 2 WEEKS;?
     Route: 042

REACTIONS (6)
  - Eschar [None]
  - Dysgeusia [None]
  - Leukoplakia [None]
  - Bone swelling [None]
  - Oral disorder [None]
  - Haemorrhage [None]

NARRATIVE: CASE EVENT DATE: 20170126
